FAERS Safety Report 8253304-9 (Version None)
Quarter: 2012Q2

REPORT INFORMATION
  Report Type: 
  Country: None (occurrence: None)
  Receive Date: 20120402
  Receipt Date: 20120309
  Transmission Date: 20120825
  Serious: No
  Sender: FDA-Public Use
  Company Number: US-AMGEN-USASP2012015697

PATIENT
  Age: 61 Year
  Sex: Male

DRUGS (3)
  1. FENTANYL [Concomitant]
  2. ENBREL [Suspect]
     Indication: RHEUMATOID ARTHRITIS
     Dosage: 50 MG, QWK
     Dates: start: 20120130
  3. CELEBREX [Concomitant]
     Dosage: UNK

REACTIONS (8)
  - SOMNOLENCE [None]
  - NASOPHARYNGITIS [None]
  - RASH ERYTHEMATOUS [None]
  - PRURITUS [None]
  - INCREASED UPPER AIRWAY SECRETION [None]
  - OROPHARYNGEAL PAIN [None]
  - COUGH [None]
  - RHEUMATOID ARTHRITIS [None]
